FAERS Safety Report 24165203 (Version 1)
Quarter: 2024Q3

REPORT INFORMATION
  Report Type: Spontaneous
  Country: HK (occurrence: HK)
  Receive Date: 20240802
  Receipt Date: 20240802
  Transmission Date: 20241017
  Serious: Yes (Other)
  Sender: NOVARTIS
  Company Number: HK-002147023-NVSC2024HK134456

PATIENT
  Age: 63 Year

DRUGS (3)
  1. LUTETIUM LU-177 VIPIVOTIDE TETRAXETAN [Suspect]
     Active Substance: LUTETIUM LU-177 VIPIVOTIDE TETRAXETAN
     Indication: Hormone-refractory prostate cancer
     Dosage: UNK
     Route: 065
  2. LUTETIUM LU-177 VIPIVOTIDE TETRAXETAN [Suspect]
     Active Substance: LUTETIUM LU-177 VIPIVOTIDE TETRAXETAN
     Dosage: 6.93 GBQ (CYCLE 1)
     Route: 065
     Dates: start: 20240508
  3. LUTETIUM LU-177 VIPIVOTIDE TETRAXETAN [Suspect]
     Active Substance: LUTETIUM LU-177 VIPIVOTIDE TETRAXETAN
     Dosage: 6.76 GBQ (CYCLE 2)
     Route: 065
     Dates: start: 20240619

REACTIONS (9)
  - Hormone-refractory prostate cancer [Unknown]
  - Malignant neoplasm progression [Unknown]
  - Metastases to liver [Unknown]
  - Fatigue [Unknown]
  - Nausea [Unknown]
  - Myalgia [Unknown]
  - Oedema peripheral [Unknown]
  - Rash [Unknown]
  - Off label use [Unknown]
